FAERS Safety Report 16685785 (Version 3)
Quarter: 2019Q4

REPORT INFORMATION
  Report Type: Spontaneous
  Country: US (occurrence: US)
  Receive Date: 20190809
  Receipt Date: 20191112
  Transmission Date: 20200122
  Serious: No
  Sender: FDA-Public Use
  Company Number: US-SA-2019SA215578

PATIENT
  Age: 73 Year
  Sex: Female

DRUGS (14)
  1. ZETIA [Concomitant]
     Active Substance: EZETIMIBE
  2. KLOR-CON [Concomitant]
     Active Substance: POTASSIUM CHLORIDE
  3. KEVZARA [Suspect]
     Active Substance: SARILUMAB
     Indication: PRODUCT USED FOR UNKNOWN INDICATION
     Dosage: 200 MG, QOW
     Route: 058
     Dates: start: 20190722
  4. COLACE [Concomitant]
     Active Substance: DOCUSATE SODIUM
  5. FISH OIL [Concomitant]
     Active Substance: FISH OIL
     Dosage: UNK
  6. LISINOPRIL. [Concomitant]
     Active Substance: LISINOPRIL
  7. OXYBUTYNIN. [Concomitant]
     Active Substance: OXYBUTYNIN CHLORIDE
  8. ATORVASTATIN [Concomitant]
     Active Substance: ATORVASTATIN
  9. KETOCONAZOLE. [Concomitant]
     Active Substance: KETOCONAZOLE
  10. FLUCONAZOLE. [Concomitant]
     Active Substance: FLUCONAZOLE
  11. BD FEN [Concomitant]
  12. ASPIRIN 81 [Concomitant]
     Active Substance: ASPIRIN
  13. METOPROLOL. [Concomitant]
     Active Substance: METOPROLOL
  14. OMEPRAZOLE. [Concomitant]
     Active Substance: OMEPRAZOLE

REACTIONS (14)
  - Adjustment disorder with depressed mood [Unknown]
  - Joint swelling [Unknown]
  - Stomatitis [Unknown]
  - Headache [Recovered/Resolved]
  - Pain [Unknown]
  - Peripheral swelling [Unknown]
  - Nausea [Recovered/Resolved]
  - Dysphonia [Recovered/Resolved]
  - Oropharyngeal pain [Recovered/Resolved]
  - Gait disturbance [Unknown]
  - Drug ineffective [Unknown]
  - Pain [Not Recovered/Not Resolved]
  - Weight increased [Unknown]
  - Abdominal pain upper [Recovered/Resolved]

NARRATIVE: CASE EVENT DATE: 20190822
